FAERS Safety Report 5049725-8 (Version None)
Quarter: 2006Q3

REPORT INFORMATION
  Report Type: 
  Country: None (occurrence: None)
  Receive Date: 20060707
  Receipt Date: 20060626
  Transmission Date: 20061208
  Serious: Yes (Death, Other)
  Sender: FDA-Public Use
  Company Number: 2006BI006082

PATIENT
  Sex: Female

DRUGS (1)
  1. AVONEX [Suspect]
     Indication: MULTIPLE SCLEROSIS
     Dosage: 30 UG; QW; IM
     Route: 030
     Dates: start: 20040311

REACTIONS (5)
  - COLORECTAL CANCER [None]
  - CONDITION AGGRAVATED [None]
  - DEHYDRATION [None]
  - MULTIPLE SCLEROSIS [None]
  - SEPSIS [None]
